FAERS Safety Report 20679903 (Version 5)
Quarter: 2025Q4

REPORT INFORMATION
  Report Type: Spontaneous
  Country: IN (occurrence: IN)
  Receive Date: 20220406
  Receipt Date: 20251010
  Transmission Date: 20260117
  Serious: Yes (Other)
  Sender: PFIZER
  Company Number: IN-PFIZER INC-2020356805

PATIENT
  Age: 61 Year
  Sex: Female

DRUGS (39)
  1. PALBOCICLIB [Suspect]
     Active Substance: PALBOCICLIB
     Indication: Breast cancer metastatic
     Dosage: 125 MG, 1X/DAY
     Route: 048
     Dates: start: 20190814, end: 2019
  2. PALBOCICLIB [Suspect]
     Active Substance: PALBOCICLIB
     Dosage: ONCE DAILY, 21 DAYS ON, 7 DAYS OFF
     Route: 048
     Dates: start: 20190814
  3. PALBOCICLIB [Suspect]
     Active Substance: PALBOCICLIB
     Dosage: ONCE DAILY, 21 DAYS ON, 7 DAYS OFF
     Route: 048
     Dates: start: 20191003
  4. PALBOCICLIB [Suspect]
     Active Substance: PALBOCICLIB
     Dosage: 125 MG, 1X/DAY
     Route: 048
     Dates: start: 20200714
  5. PALBOCICLIB [Suspect]
     Active Substance: PALBOCICLIB
     Dosage: UNK, CYCLE 24
     Dates: start: 20210524, end: 20210613
  6. PALBOCICLIB [Suspect]
     Active Substance: PALBOCICLIB
     Dosage: UNK, CYCLE 25
     Dates: start: 20210621, end: 20210711
  7. PALBOCICLIB [Suspect]
     Active Substance: PALBOCICLIB
     Dosage: UNK, CYCLE 26
     Dates: start: 20210719, end: 20210808
  8. PALBOCICLIB [Suspect]
     Active Substance: PALBOCICLIB
     Dosage: UNK, CYCLE 27
     Dates: start: 20210816, end: 20210905
  9. PALBOCICLIB [Suspect]
     Active Substance: PALBOCICLIB
     Dosage: UNK, CYCLE 28
     Dates: start: 20210914, end: 20211004
  10. PALBOCICLIB [Suspect]
     Active Substance: PALBOCICLIB
     Dosage: UNK, CYCLE 29
     Dates: start: 20211012, end: 20211101
  11. PALBOCICLIB [Suspect]
     Active Substance: PALBOCICLIB
     Dosage: UNK, CYCLE 30
     Dates: start: 20211109, end: 20211129
  12. PALBOCICLIB [Suspect]
     Active Substance: PALBOCICLIB
     Dosage: UNK, CYCLE 31
     Dates: start: 20211207, end: 20211227
  13. FULVESTRANT [Concomitant]
     Active Substance: FULVESTRANT
     Dosage: UNK
     Dates: start: 20190814
  14. FULVESTRANT [Concomitant]
     Active Substance: FULVESTRANT
     Dosage: 500 MG (250MG DEEP IM IN EACH BUTTOCK)
     Route: 030
     Dates: start: 20200912, end: 20201012
  15. FULVESTRANT [Concomitant]
     Active Substance: FULVESTRANT
     Dosage: 500 MG (250MG DEEP IM IN EACH BUTTOCK)
     Route: 030
     Dates: start: 20210212
  16. FULVESTRANT [Concomitant]
     Active Substance: FULVESTRANT
     Dosage: 500 MG (250MG DEEP IM IN EACH BUTTOCK)
     Route: 030
     Dates: start: 20210312
  17. FULVESTRANT [Concomitant]
     Active Substance: FULVESTRANT
     Dosage: 500 MG I/M STAT (250 MG DEEP I/M IN EACH BUTTOCK)
     Route: 030
     Dates: start: 20210612
  18. FULVESTRANT [Concomitant]
     Active Substance: FULVESTRANT
     Dosage: 500 MG I/M STAT (250 MG DEEP I/M IN EACH BUTTOCK)
     Route: 030
     Dates: start: 20210712
  19. FULVESTRANT [Concomitant]
     Active Substance: FULVESTRANT
     Dosage: 500 MG I/M STAT (250 MG DEEP I/M IN EACH BUTTOCK)
     Route: 030
     Dates: start: 20210812
  20. FULVESTRANT [Concomitant]
     Active Substance: FULVESTRANT
     Dosage: 500 MG I/M STAT (250 MG DEEP I/M IN EACH BUTTOCK)
     Route: 030
     Dates: start: 20210914
  21. FULVESTRANT [Concomitant]
     Active Substance: FULVESTRANT
     Dosage: 500 MG I/M STAT (250 MG DEEP I/M IN EACH BUTTOCK)
     Route: 030
     Dates: start: 20211014
  22. FULVESTRANT [Concomitant]
     Active Substance: FULVESTRANT
     Dosage: UNK
     Dates: end: 202110
  23. FULVESTRANT [Concomitant]
     Active Substance: FULVESTRANT
     Dosage: UNK
     Dates: start: 202201
  24. FULVESTRANT [Concomitant]
     Active Substance: FULVESTRANT
     Dosage: UNK
     Dates: start: 20220118
  25. FULVESTRANT [Concomitant]
     Active Substance: FULVESTRANT
     Dosage: UNK
     Dates: start: 20220218
  26. FULVESTRANT [Concomitant]
     Active Substance: FULVESTRANT
     Dosage: UNK
     Dates: start: 20220318
  27. ESENTRA [Concomitant]
     Dosage: 120 MG, UNK
     Route: 058
     Dates: start: 20200912, end: 20201012
  28. PAN [Concomitant]
     Dosage: 40 MG, 1X/DAY (EMPTY STOMACH)
  29. LIVOGEN [FERROUS FUMARATE;FOLIC ACID] [Concomitant]
     Dosage: 2-1, 1X/DAY
  30. SACCARINUM PLUS [Concomitant]
     Dosage: 5 ML, 2X/DAY
  31. FOLIUM [Concomitant]
     Dosage: 5 MG, 1X/DAY
  32. ZOLEDRONIC ACID [Concomitant]
     Active Substance: ZOLEDRONIC ACID
     Dosage: 4 MG IN 100ML NORMAL SALINE
     Dates: start: 20210212
  33. ZOLEDRONIC ACID [Concomitant]
     Active Substance: ZOLEDRONIC ACID
     Dosage: 4 MG IN 100ML NORMAL SALINE
     Dates: start: 20210312
  34. ZOLEDRONIC ACID [Concomitant]
     Active Substance: ZOLEDRONIC ACID
     Dosage: 4 MG IN 100 ML NORMAL SALINE OVER 20 MINUTES IV STAT
     Route: 042
     Dates: start: 20210612
  35. ZOLEDRONIC ACID [Concomitant]
     Active Substance: ZOLEDRONIC ACID
     Dosage: 4 MG IN 100 ML NORMAL SALINE OVER 20 MINUTES IV STAT
     Route: 042
     Dates: start: 20210712
  36. ZOLEDRONIC ACID [Concomitant]
     Active Substance: ZOLEDRONIC ACID
     Dosage: 4 MG IN 100 ML NORMAL SALINE OVER 20 MINUTES IV STAT
     Route: 042
     Dates: start: 20210812
  37. ZOLEDRONIC ACID [Concomitant]
     Active Substance: ZOLEDRONIC ACID
     Dosage: 4 MG IN 100ML NORMAL SALINE
     Route: 042
     Dates: start: 20220418
  38. ZOLEDRONIC ACID [Concomitant]
     Active Substance: ZOLEDRONIC ACID
     Dosage: 4 MG IN 100 ML NORMAL SALINE OVER 20 MINUTES IV STAT
     Route: 042
     Dates: start: 20220718
  39. LETROZOLE [Concomitant]
     Active Substance: LETROZOLE
     Dosage: 2.5 MG, 1X/DAY

REACTIONS (8)
  - Cataract [Unknown]
  - Platelet count increased [Recovering/Resolving]
  - Lymphocyte count decreased [Recovering/Resolving]
  - Neutrophil count decreased [Recovering/Resolving]
  - Pyrexia [Recovered/Resolved]
  - Neutrophil count abnormal [Unknown]
  - Weight increased [Unknown]
  - Off label use [Unknown]
